FAERS Safety Report 8322455-2 (Version None)
Quarter: 2012Q2

REPORT INFORMATION
  Report Type: 
  Country: None (occurrence: None)
  Receive Date: 20120430
  Receipt Date: 20120420
  Transmission Date: 20120825
  Serious: Yes (Other)
  Sender: FDA-Public Use
  Company Number: US-ROCHE-1062102

PATIENT
  Age: 30 Year
  Sex: Male

DRUGS (1)
  1. AVASTIN [Suspect]
     Indication: GLIOBLASTOMA
     Dosage: DOSE:UNKNOWN
     Route: 042

REACTIONS (3)
  - DRY MOUTH [None]
  - THIRST [None]
  - MICTURITION DISORDER [None]
